FAERS Safety Report 18986405 (Version 5)
Quarter: 2021Q4

REPORT INFORMATION
  Report Type: Report from Study
  Country: US (occurrence: US)
  Receive Date: 20210309
  Receipt Date: 20211225
  Transmission Date: 20220303
  Serious: Yes (Other)
  Sender: FDA-Public Use
  Company Number: NVSC2021US054416

PATIENT
  Sex: Male

DRUGS (2)
  1. ENTRESTO [Suspect]
     Active Substance: SACUBITRIL\VALSARTAN
     Indication: Product used for unknown indication
     Dosage: UNK
     Route: 065
  2. ENTRESTO [Suspect]
     Active Substance: SACUBITRIL\VALSARTAN
     Dosage: UNK
     Route: 065
     Dates: start: 20200101

REACTIONS (12)
  - Hip fracture [Recovering/Resolving]
  - Hypoacusis [Unknown]
  - Balance disorder [Unknown]
  - Dyspnoea [Unknown]
  - Muscular weakness [Unknown]
  - Fall [Recovering/Resolving]
  - Decreased appetite [Unknown]
  - Weight decreased [Unknown]
  - Dizziness [Unknown]
  - Cough [Unknown]
  - Hypotension [Recovering/Resolving]
  - Product availability issue [Unknown]
